FAERS Safety Report 13911293 (Version 2)
Quarter: 2017Q3

REPORT INFORMATION
  Report Type: Report from Study
  Country: LB (occurrence: LB)
  Receive Date: 20170828
  Receipt Date: 20170913
  Transmission Date: 20171127
  Serious: Yes (Hospitalization)
  Sender: FDA-Public Use
  Company Number: PHHY2017LB122933

PATIENT
  Age: 27 Year
  Sex: Male

DRUGS (2)
  1. METHOTREXATE. [Suspect]
     Active Substance: METHOTREXATE
     Dosage: 1 G, QD
     Route: 048
     Dates: start: 201511
  2. METHOTREXATE. [Suspect]
     Active Substance: METHOTREXATE
     Indication: PSORIASIS
     Dosage: UNK
     Route: 048
     Dates: start: 2013

REACTIONS (5)
  - Hepatic enzyme increased [Unknown]
  - Psoriasis [Unknown]
  - Rash [Recovered/Resolved]
  - Adverse drug reaction [Recovered/Resolved]
  - Liver disorder [Unknown]

NARRATIVE: CASE EVENT DATE: 2015
